FAERS Safety Report 24365199 (Version 1)
Quarter: 2024Q3

REPORT INFORMATION
  Report Type: Spontaneous
  Country: US (occurrence: US)
  Receive Date: 20240926
  Receipt Date: 20240926
  Transmission Date: 20241017
  Serious: No
  Sender: NOVARTIS
  Company Number: US-002147023-NVSC2024US191127

PATIENT
  Age: 64 Year
  Sex: Female
  Weight: 105 kg

DRUGS (2)
  1. KISQALI [Suspect]
     Active Substance: RIBOCICLIB
     Indication: Breast cancer female
     Dosage: 600 MG, QD (TAKE 3 TABS (600 MG TOTAL) FOR 21 DAYS OF 28 DAY CYCLE)
     Route: 048
  2. LETROZOLE [Suspect]
     Active Substance: LETROZOLE
     Indication: Product used for unknown indication
     Dosage: UNK
     Route: 065

REACTIONS (2)
  - Alopecia [Unknown]
  - Hot flush [Unknown]
